FAERS Safety Report 10757793 (Version 1)
Quarter: 2015Q1

REPORT INFORMATION
  Report Type: Spontaneous
  Country: US (occurrence: None)
  Receive Date: 20150202
  Receipt Date: 20150202
  Transmission Date: 20150721
  Serious: Yes (Other)
  Sender: FDA-Public Use
  Company Number: None

PATIENT
  Age: 72 Year
  Sex: Female

DRUGS (1)
  1. NEXAVAR [Suspect]
     Active Substance: SORAFENIB
     Indication: RENAL CANCER
     Dosage: DATES OF USE PROVIDED ARE GREATER THAN CURRENT DATE ?11062015 TO 11132015
     Route: 048
     Dates: start: 2015, end: 2015

REACTIONS (3)
  - Pruritus [None]
  - Burning sensation [None]
  - Blister [None]

NARRATIVE: CASE EVENT DATE: 20150113
